FAERS Safety Report 4561547-0 (Version None)
Quarter: 2005Q1

REPORT INFORMATION
  Report Type: 
  Country: None (occurrence: None)
  Receive Date: 20050121
  Receipt Date: 20050106
  Transmission Date: 20050727
  Serious: Yes (Disabling)
  Sender: FDA-Public Use
  Company Number: A03200500030

PATIENT
  Age: 84 Year
  Sex: Male

DRUGS (1)
  1. ELIGARD [Suspect]
     Indication: PROSTATE CANCER
     Dosage: 7.5 MG 1/MONTH - SUBCUTANEOUS
     Route: 058
     Dates: start: 20040101

REACTIONS (1)
  - CEREBROVASCULAR ACCIDENT [None]
